FAERS Safety Report 8988860 (Version 1)
Quarter: 2012Q4

REPORT INFORMATION
  Report Type: Spontaneous
  Country: US (occurrence: None)
  Receive Date: 20121224
  Receipt Date: 20121224
  Transmission Date: 20130627
  Serious: Yes (Other)
  Sender: FDA-Public Use
  Company Number: None

PATIENT
  Age: 49 Year
  Sex: Male
  Weight: 71.22 kg

DRUGS (1)
  1. FINASTERIDE 5 MG AUROBINDO [Suspect]
     Indication: ENLARGED PROSTATE
     Dosage: 1 daily po
     Route: 048

REACTIONS (6)
  - Libido decreased [None]
  - Male orgasmic disorder [None]
  - Ejaculation failure [None]
  - Dizziness [None]
  - Dysgeusia [None]
  - Dysgeusia [None]
